FAERS Safety Report 5316428-1 (Version None)
Quarter: 2007Q2

REPORT INFORMATION
  Report Type: 
  Country: None (occurrence: None)
  Receive Date: 20070504
  Receipt Date: 20070423
  Transmission Date: 20071010
  Serious: Yes (Other)
  Sender: FDA-Public Use
  Company Number: PHBS2007JP01074

PATIENT
  Sex: Female
  Weight: 55 kg

DRUGS (2)
  1. TEGRETOL [Suspect]
     Indication: EPILEPSY
     Dosage: 300 MG/DAY
     Route: 048
  2. RIVOTRIL [Suspect]
     Indication: EPILEPSY
     Dosage: 2 MG/DAY
     Route: 065

REACTIONS (3)
  - DRUG EXPOSURE DURING PREGNANCY [None]
  - EPILEPSY [None]
  - LOSS OF CONSCIOUSNESS [None]
